FAERS Safety Report 17427648 (Version 1)
Quarter: 2020Q1

REPORT INFORMATION
  Report Type: Spontaneous
  Country: FR (occurrence: FR)
  Receive Date: 20200217
  Receipt Date: 20200217
  Transmission Date: 20200409
  Serious: Yes (Death, Hospitalization)
  Sender: FDA-Public Use
  Company Number: FR-MYLANLABS-2020M1017746

PATIENT
  Age: 52 Year
  Sex: Male
  Weight: 74 kg

DRUGS (10)
  1. RITUXIMAB. [Concomitant]
     Active Substance: RITUXIMAB
     Indication: B-CELL LYMPHOMA
     Dosage: 375 MILLIGRAM/SQ. METER, CYCLE
     Route: 042
     Dates: start: 20190924, end: 20190924
  2. INNOHEP [Concomitant]
     Active Substance: TINZAPARIN SODIUM
     Indication: THROMBOSIS PROPHYLAXIS
     Dosage: 13000 INTERNATIONAL UNIT, QD
     Route: 058
  3. SOPHIDONE LP [Concomitant]
     Active Substance: HYDROMORPHONE HYDROCHLORIDE
     Indication: PAIN
     Dosage: 8 MILLIGRAM, QD
     Route: 048
  4. VANCOMYCINE SANDOZ [Concomitant]
     Active Substance: VANCOMYCIN
     Indication: INFECTION
     Dosage: 1000 MILLIGRAM, QD
     Route: 042
     Dates: start: 20191004, end: 20191007
  5. PIPERACILLIN,TAZOBACTAM MYLAN [Interacting]
     Active Substance: PIPERACILLIN SODIUM\TAZOBACTAM SODIUM
     Indication: INFECTION
     Dosage: 4 GRAM, QD
     Route: 042
     Dates: start: 20191004, end: 20191013
  6. CYTARABINE. [Concomitant]
     Active Substance: CYTARABINE
     Indication: B-CELL LYMPHOMA
     Dosage: 3800 MILLIGRAM, BID
     Route: 042
     Dates: start: 20190924, end: 20190924
  7. METHOTREXATE MYLAN [Suspect]
     Active Substance: METHOTREXATE SODIUM
     Indication: B-CELL LYMPHOMA
     Dosage: 5730 MILLIGRAM, CYCLE(3G/M2 SOIT 5730MG)
     Route: 042
     Dates: start: 20191011, end: 20191013
  8. NEOFORDEX [Concomitant]
     Active Substance: DEXAMETHASONE ACETATE
     Indication: B-CELL LYMPHOMA
     Dosage: 40 MILLIGRAM, CYCLE (40MG DE J1 ? J4)
     Route: 042
     Dates: start: 20190924, end: 20190927
  9. OXALIPLATINE ACCORD [Concomitant]
     Active Substance: OXALIPLATIN
     Indication: B-CELL LYMPHOMA
     Dosage: 240 MILLIGRAM, CYCLE
     Route: 042
     Dates: start: 20190924, end: 20190924
  10. NEURONTIN [Concomitant]
     Active Substance: GABAPENTIN
     Indication: PAIN
     Dosage: 900 MILLIGRAM, QD
     Route: 048

REACTIONS (2)
  - Acute kidney injury [Fatal]
  - Drug interaction [Unknown]

NARRATIVE: CASE EVENT DATE: 20191013
